FAERS Safety Report 26039910 (Version 1)
Quarter: 2025Q4

REPORT INFORMATION
  Report Type: Report from Study
  Country: BR (occurrence: BR)
  Receive Date: 20251113
  Receipt Date: 20251113
  Transmission Date: 20260117
  Serious: Yes (Hospitalization)
  Sender: BIOGEN
  Company Number: BR-BIOGEN-2090065

PATIENT
  Sex: Male
  Weight: 2.6 kg

DRUGS (1)
  1. TYSABRI [Suspect]
     Active Substance: NATALIZUMAB
     Indication: Maternal exposure timing unspecified
     Route: 064

REACTIONS (3)
  - Bronchiolitis [Unknown]
  - Dyspnoea [Unknown]
  - Foetal exposure during pregnancy [Recovered/Resolved]
